FAERS Safety Report 13640302 (Version 1)
Quarter: 2017Q2

REPORT INFORMATION
  Report Type: Report from Study
  Country: None (occurrence: US)
  Receive Date: 20170610
  Receipt Date: 20170610
  Transmission Date: 20170830
  Serious: Yes (Other)
  Sender: FDA-Public Use
  Company Number: US-ABBVIE-17K-163-1912469-00

PATIENT
  Age: 67 Year
  Sex: Female

DRUGS (1)
  1. HUMIRA [Suspect]
     Active Substance: ADALIMUMAB
     Indication: RHEUMATOID ARTHRITIS
     Route: 058

REACTIONS (4)
  - Blood pressure fluctuation [Not Recovered/Not Resolved]
  - Food allergy [Unknown]
  - Viral upper respiratory tract infection [Unknown]
  - Urticaria [Unknown]

NARRATIVE: CASE EVENT DATE: 201703
